FAERS Safety Report 6003051-9 (Version None)
Quarter: 2008Q4

REPORT INFORMATION
  Report Type: 
  Country: None (occurrence: None)
  Receive Date: 20081215
  Receipt Date: 20081203
  Transmission Date: 20090506
  Serious: Yes (Other)
  Sender: FDA-Public Use
  Company Number: IE-PFIZER INC-2008152371

PATIENT

DRUGS (6)
  1. LYRICA [Suspect]
     Indication: NEURALGIA
     Dosage: 300 MG, 2X/DAY
     Route: 048
     Dates: start: 20080826
  2. PRAVASTATIN [Concomitant]
  3. LANSOPRAZOLE [Concomitant]
  4. INDAPAMIDE [Concomitant]
  5. GLUCOSAMINE [Concomitant]
  6. DICLOFENAC [Concomitant]

REACTIONS (4)
  - ANOREXIA [None]
  - FEELING OF BODY TEMPERATURE CHANGE [None]
  - MALAISE [None]
  - WITHDRAWAL SYNDROME [None]
